FAERS Safety Report 8020990-8 (Version None)
Quarter: 2011Q4

REPORT INFORMATION
  Report Type: 
  Country: None (occurrence: None)
  Receive Date: 20111228
  Receipt Date: 20111221
  Transmission Date: 20120403
  Serious: Yes (Hospitalization)
  Sender: FDA-Public Use
  Company Number: DKLU1075631

PATIENT
  Age: 1 Day
  Sex: Male

DRUGS (5)
  1. LEVOTHYROXINE SODIUM [Suspect]
     Indication: PRODUCT USED FOR UNKNOWN INDICATION
     Dosage: 125 UG MICROGRAM(S), 1 IN 1 D, TRANSPLACENTAL
     Route: 064
     Dates: end: 20111123
  2. LAMOTRIGINE [Suspect]
     Indication: EPILEPSY
     Dosage: 1 DF DOSAGE FORM, 2 IN 1 D, TRANSPLACENTAL
     Route: 064
     Dates: end: 20111123
  3. NEURONTIN [Suspect]
     Indication: EPILEPSY
     Dosage: 1 DF DOSAGE FORM, 3 IN 1 D, TRANSPLACENTAL
     Route: 064
     Dates: end: 20111123
  4. ONFI [Suspect]
     Indication: EPILEPSY
     Dosage: 5 MG MILLIGRAM(S), 2 IN 1 D, TRANSPLACENTAL
     Route: 064
     Dates: end: 20111123
  5. TRAMADOL HYDROCHLORIDE [Suspect]
     Indication: PAIN IN EXTREMITY
     Dosage: 100 MG MILLIGRAM(S), 1 IN 1 D, TRANSPLACENTAL
     Route: 064
     Dates: start: 20110701, end: 20111123

REACTIONS (3)
  - PREMATURE SEPARATION OF PLACENTA [None]
  - MATERNAL DRUGS AFFECTING FOETUS [None]
  - HAEMATOMA [None]
